FAERS Safety Report 7643793-2 (Version None)
Quarter: 2011Q3

REPORT INFORMATION
  Report Type: 
  Country: None (occurrence: None)
  Receive Date: 20110722
  Receipt Date: 20110706
  Transmission Date: 20111222
  Serious: Yes (Hospitalization)
  Sender: FDA-Public Use
  Company Number: LTI2011A00192

PATIENT
  Age: 68 Year
  Sex: Male

DRUGS (7)
  1. NEXIUM [Suspect]
     Dates: start: 20100801
  2. SINGULAIR [Concomitant]
  3. CARTEOLOL HYDROCHLORIDE [Concomitant]
  4. TADENAN (PRUNUS AFRICANA) [Concomitant]
  5. SYMBICORT TURBUHALER (FORMOTEROL FUMARATE, BUDESONIDE) [Concomitant]
  6. LANSOPRAZOLE [Suspect]
     Dosage: ORAL
     Route: 048
     Dates: start: 20100801
  7. COZAAR [Concomitant]

REACTIONS (2)
  - ACUTE GENERALISED EXANTHEMATOUS PUSTULOSIS [None]
  - DRUG RASH WITH EOSINOPHILIA AND SYSTEMIC SYMPTOMS [None]
